FAERS Safety Report 7041438-6 (Version None)
Quarter: 2010Q4

REPORT INFORMATION
  Report Type: 
  Country: None (occurrence: None)
  Receive Date: 20101013
  Receipt Date: 20101006
  Transmission Date: 20110411
  Serious: Yes (Other)
  Sender: FDA-Public Use
  Company Number: US-BAXTER-2010BH024201

PATIENT
  Age: 22 Year
  Sex: Female

DRUGS (2)
  1. FORANE [Suspect]
     Indication: OCCUPATIONAL EXPOSURE TO DRUG
     Route: 055
  2. CHLORHEXIDINE GLUCONATE [Suspect]
     Indication: OCCUPATIONAL EXPOSURE TO DRUG
     Route: 055

REACTIONS (7)
  - CHEST DISCOMFORT [None]
  - DYSPNOEA [None]
  - EYE IRRITATION [None]
  - HYPERSENSITIVITY [None]
  - OCCUPATIONAL EXPOSURE TO DRUG [None]
  - SNEEZING [None]
  - UPPER RESPIRATORY TRACT INFECTION [None]
